FAERS Safety Report 4925562-7 (Version None)
Quarter: 2006Q1

REPORT INFORMATION
  Report Type: 
  Country: None (occurrence: None)
  Receive Date: 20060228
  Receipt Date: 20041109
  Transmission Date: 20060701
  Serious: Yes (Other)
  Sender: FDA-Public Use
  Company Number: US-GLAXOSMITHKLINE-A0533246A

PATIENT
  Sex: Male

DRUGS (3)
  1. LAMICTAL [Suspect]
     Indication: BIPOLAR DISORDER
     Route: 048
  2. LEXAPRO [Concomitant]
  3. XANAX [Concomitant]

REACTIONS (4)
  - DEPRESSION [None]
  - EUPHORIC MOOD [None]
  - HYPOMANIA [None]
  - MANIA [None]
